FAERS Safety Report 14517579 (Version 6)
Quarter: 2018Q2

REPORT INFORMATION
  Report Type: Spontaneous
  Country: GB (occurrence: GB)
  Receive Date: 20180212
  Receipt Date: 20180604
  Transmission Date: 20180711
  Serious: Yes (Other)
  Sender: FDA-Public Use
  Company Number: GB-ROCHE-2066684

PATIENT
  Age: 46 Year
  Sex: Male
  Weight: 81 kg

DRUGS (3)
  1. SOVALDI [Suspect]
     Active Substance: SOFOSBUVIR
     Indication: CHRONIC HEPATITIS C
     Dosage: LAST ADMINISTRATION: 03/MAR/2016
     Route: 048
     Dates: start: 20160107, end: 20160303
  2. DACLATASVIR. [Suspect]
     Active Substance: DACLATASVIR
     Indication: CHRONIC HEPATITIS C
     Dosage: LAST ADMINISTRATION: 03/MAR/2016
     Route: 048
     Dates: start: 20160107, end: 20160303
  3. RIBAVIRIN. [Suspect]
     Active Substance: RIBAVIRIN
     Indication: CHRONIC HEPATITIS C
     Dosage: LAST ADMINISTRATION: 03/MAR/2016
     Route: 048
     Dates: start: 20160107, end: 20160303

REACTIONS (5)
  - Incorrect drug administration duration [Unknown]
  - Hepatitis C [Unknown]
  - Drug ineffective [Unknown]
  - Genotype drug resistance test positive [Unknown]
  - Intentional dose omission [Unknown]

NARRATIVE: CASE EVENT DATE: 201603
